FAERS Safety Report 6349409-X (Version None)
Quarter: 2009Q3

REPORT INFORMATION
  Report Type: 
  Country: None (occurrence: None)
  Receive Date: 20090908
  Receipt Date: 20090825
  Transmission Date: 20100115
  Serious: Yes (Hospitalization)
  Sender: FDA-Public Use
  Company Number: ADR18162009

PATIENT
  Age: 43 Year
  Sex: Female

DRUGS (4)
  1. RISPERIDONE [Suspect]
  2. DENZAPINE [Concomitant]
  3. DIAZEPAM [Concomitant]
  4. LORAZEPAM [Concomitant]

REACTIONS (2)
  - INTENTIONAL OVERDOSE [None]
  - SOMNOLENCE [None]
